FAERS Safety Report 9037262 (Version 1)
Quarter: 2013Q1

REPORT INFORMATION
  Report Type: Spontaneous
  Country: US (occurrence: None)
  Receive Date: 20130123
  Receipt Date: 20130123
  Transmission Date: 20140127
  Serious: Yes (Hospitalization)
  Sender: FDA-Public Use
  Company Number: None

PATIENT
  Age: 81 Year
  Sex: Male

DRUGS (2)
  1. WARFARIN [Suspect]
     Route: 048
  2. PLAVIX [Suspect]
     Route: 048

REACTIONS (6)
  - Upper gastrointestinal haemorrhage [None]
  - Dizziness [None]
  - Asthenia [None]
  - Haemoglobin decreased [None]
  - Acute myocardial infarction [None]
  - Cardiogenic shock [None]
